FAERS Safety Report 10377450 (Version 1)
Quarter: 2014Q3

REPORT INFORMATION
  Report Type: Spontaneous
  Country: JP (occurrence: JP)
  Receive Date: 20140812
  Receipt Date: 20140812
  Transmission Date: 20150326
  Serious: No
  Sender: FDA-Public Use
  Company Number: PHHY2013JP160424

PATIENT
  Age: 55 Year
  Sex: Male

DRUGS (1)
  1. TASIGNA [Suspect]
     Active Substance: NILOTINIB
     Indication: CHRONIC MYELOID LEUKAEMIA
     Dosage: 600 MG, UNK
     Dates: start: 20120329

REACTIONS (3)
  - Platelet count abnormal [Unknown]
  - White blood cell disorder [Unknown]
  - Electrocardiogram QT interval abnormal [Unknown]
